FAERS Safety Report 4292032-1 (Version None)
Quarter: 2004Q1

REPORT INFORMATION
  Report Type: 
  Country: None (occurrence: None)
  Receive Date: 20040126
  Receipt Date: 20031030
  Transmission Date: 20041129
  Serious: No
  Sender: FDA-Public Use
  Company Number: USA031050905

PATIENT
  Age: 74 Year
  Sex: Female
  Weight: 61 kg

DRUGS (6)
  1. FORTEO [Suspect]
     Dates: start: 20031010
  2. CELEBREX [Concomitant]
  3. EVISTA [Concomitant]
  4. MIACALCIN [Concomitant]
  5. FOSAMAX [Concomitant]
  6. CALCIUM [Concomitant]

REACTIONS (4)
  - ARTHRALGIA [None]
  - DIFFICULTY IN WALKING [None]
  - JOINT STIFFNESS [None]
  - PAIN IN EXTREMITY [None]
